FAERS Safety Report 5050659-3 (Version None)
Quarter: 2006Q3

REPORT INFORMATION
  Report Type: 
  Country: None (occurrence: None)
  Receive Date: 20060710
  Receipt Date: 20060630
  Transmission Date: 20061208
  Serious: Yes (Other)
  Sender: FDA-Public Use
  Company Number: 2006-06-2087

PATIENT
  Age: 55 Year
  Sex: Female

DRUGS (1)
  1. AERIUS (DESLORATADINE) TABLETS [Suspect]
     Indication: URTICARIA

REACTIONS (2)
  - CHOLESTASIS [None]
  - HEPATIC ENZYME INCREASED [None]
